FAERS Safety Report 9768350 (Version 1)
Quarter: 2013Q4

REPORT INFORMATION
  Report Type: Spontaneous
  Country: US (occurrence: US)
  Receive Date: 20131217
  Receipt Date: 20131217
  Transmission Date: 20140711
  Serious: No
  Sender: FDA-Public Use
  Company Number: US-009507513-1310USA008426

PATIENT
  Sex: Male

DRUGS (1)
  1. DULERA [Suspect]
     Route: 055

REACTIONS (1)
  - Bone pain [Recovering/Resolving]
